FAERS Safety Report 24232877 (Version 1)
Quarter: 2024Q3

REPORT INFORMATION
  Report Type: Report from Study
  Country: US (occurrence: US)
  Receive Date: 20240821
  Receipt Date: 20240821
  Transmission Date: 20241016
  Serious: Yes (Hospitalization)
  Sender: PFIZER
  Company Number: US-SEATTLE GENETICS-2024SGN03709

PATIENT
  Age: 58 Year
  Sex: Female

DRUGS (5)
  1. TUKYSA [Suspect]
     Active Substance: TUCATINIB
     Indication: Metastases to central nervous system
     Dosage: UNK
     Dates: start: 20240315
  2. TUKYSA [Suspect]
     Active Substance: TUCATINIB
     Indication: Breast cancer female
     Dosage: 200 MG, 2X/DAY
     Route: 048
     Dates: end: 20240604
  3. TUKYSA [Suspect]
     Active Substance: TUCATINIB
     Dosage: 150MG PO (PER ORAL) TWICE A DAY
     Route: 048
     Dates: start: 20240315
  4. TAGRISSO [Concomitant]
     Active Substance: OSIMERTINIB
     Dosage: 150 MG
  5. TAGRISSO [Concomitant]
     Active Substance: OSIMERTINIB
     Dosage: 50 MG

REACTIONS (3)
  - Headache [Unknown]
  - Constipation [Unknown]
  - Off label use [Unknown]
